FAERS Safety Report 9537622 (Version 3)
Quarter: 2013Q4

REPORT INFORMATION
  Report Type: Spontaneous
  Country: JP (occurrence: JP)
  Receive Date: 20130919
  Receipt Date: 20131014
  Transmission Date: 20140711
  Serious: Yes (Other)
  Sender: FDA-Public Use
  Company Number: JP-B.I. PHARMACEUTICALS,INC./RIDGEFIELD-2013-BI-29166YA

PATIENT
  Age: 82 Year
  Sex: Male

DRUGS (2)
  1. HARNAL (TAMSULOSIN) ORODISPERSABLE CR [Suspect]
     Dosage: FORMULATION:ORODISPERSIBLE CR TABLET
     Route: 048
     Dates: start: 20130906
  2. OZEX [Concomitant]
     Route: 048

REACTIONS (1)
  - Jaundice [Unknown]
